FAERS Safety Report 6161972-0 (Version None)
Quarter: 2009Q2

REPORT INFORMATION
  Report Type: 
  Country: None (occurrence: None)
  Receive Date: 20090417
  Receipt Date: 20090406
  Transmission Date: 20091009
  Serious: Yes (Other)
  Sender: FDA-Public Use
  Company Number: 239445

PATIENT
  Age: 65 Year
  Sex: Male

DRUGS (1)
  1. CARBOPLATIN [Suspect]
     Dosage: 294 MG, WEEKLY, INTRAVENOUS
     Route: 042
     Dates: start: 20090406

REACTIONS (2)
  - CONVULSION [None]
  - UNRESPONSIVE TO STIMULI [None]
